FAERS Safety Report 6134922-0 (Version None)
Quarter: 2009Q1

REPORT INFORMATION
  Report Type: 
  Country: None (occurrence: None)
  Receive Date: 20090327
  Receipt Date: 20090317
  Transmission Date: 20090719
  Serious: Yes (Other)
  Sender: FDA-Public Use
  Company Number: US-PFIZER INC-2009165741

PATIENT
  Sex: Female
  Weight: 57 kg

DRUGS (4)
  1. DIFLUCAN [Suspect]
     Dosage: 100 MG, 1X/DAY
     Route: 048
     Dates: start: 20080909, end: 20081001
  2. NEURONTIN [Concomitant]
  3. CLONAZEPAM [Concomitant]
  4. NYSTATIN [Concomitant]

REACTIONS (6)
  - ENURESIS [None]
  - HYPERSENSITIVITY [None]
  - INFLUENZA [None]
  - LIP SWELLING [None]
  - RASH [None]
  - URTICARIA [None]
